FAERS Safety Report 19362365 (Version 3)
Quarter: 2021Q4

REPORT INFORMATION
  Report Type: Report from Study
  Country: KR (occurrence: KR)
  Receive Date: 20210603
  Receipt Date: 20211126
  Transmission Date: 20220303
  Serious: Yes (Other)
  Sender: FDA-Public Use
  Company Number: KR-KYOWAKIRIN-2021AKK009332

PATIENT
  Age: 63 Year
  Sex: Male

DRUGS (68)
  1. FILGRASTIM [Suspect]
     Active Substance: FILGRASTIM
     Indication: Product used for unknown indication
     Dosage: 300 UNK
     Route: 065
     Dates: start: 20110816, end: 20110816
  2. FILGRASTIM [Suspect]
     Active Substance: FILGRASTIM
     Dosage: 300 UNK
     Route: 065
     Dates: start: 20110830, end: 20110830
  3. FILGRASTIM [Suspect]
     Active Substance: FILGRASTIM
     Dosage: 300 UNK
     Route: 065
     Dates: start: 20111128, end: 20111128
  4. FILGRASTIM [Suspect]
     Active Substance: FILGRASTIM
     Dosage: 300 UNK
     Route: 065
     Dates: start: 20111212, end: 20111212
  5. FILGRASTIM [Suspect]
     Active Substance: FILGRASTIM
     Dosage: 300 UNK
     Route: 065
     Dates: start: 20120116, end: 20120116
  6. DECITABINE [Concomitant]
     Active Substance: DECITABINE
     Indication: Product used for unknown indication
     Dosage: 15 UNK, QD
     Dates: start: 20120423, end: 20120427
  7. DECITABINE [Concomitant]
     Active Substance: DECITABINE
     Dosage: 20 UNK, QD
     Dates: start: 20110603, end: 20110607
  8. DECITABINE [Concomitant]
     Active Substance: DECITABINE
     Dosage: 20 UNK, QD
     Dates: start: 20110711, end: 20110715
  9. DECITABINE [Concomitant]
     Active Substance: DECITABINE
     Dosage: 20 UNK, QD
     Dates: start: 20110808, end: 20110812
  10. DECITABINE [Concomitant]
     Active Substance: DECITABINE
     Dosage: 20 UNK, QD
     Dates: start: 20110905, end: 20110909
  11. DECITABINE [Concomitant]
     Active Substance: DECITABINE
     Dosage: 20 UNK, QD
     Dates: start: 20111114, end: 20111118
  12. DECITABINE [Concomitant]
     Active Substance: DECITABINE
     Dosage: 20 UNK, QD
     Dates: start: 20120102, end: 20120106
  13. DECITABINE [Concomitant]
     Active Substance: DECITABINE
     Dosage: 20 UNK, QD
     Dates: start: 20120213, end: 20120217
  14. ACETYLCYSTEINE [Concomitant]
     Active Substance: ACETYLCYSTEINE
     Indication: Product used for unknown indication
     Dosage: 400 MILLIGRAM
     Dates: start: 20120213, end: 20120217
  15. ACETYLCYSTEINE [Concomitant]
     Active Substance: ACETYLCYSTEINE
     Dosage: 400 MILLIGRAM
     Dates: start: 20120417, end: 20120421
  16. ACETYLCYSTEINE [Concomitant]
     Active Substance: ACETYLCYSTEINE
     Dosage: 600 MILLIGRAM
     Dates: start: 20120507, end: 20120508
  17. PENICILLIN G BENZATHINE [Concomitant]
     Active Substance: PENICILLIN G BENZATHINE
     Indication: Product used for unknown indication
     Dosage: 2 UNK
     Dates: start: 20110603, end: 20110603
  18. PENICILLIN G BENZATHINE [Concomitant]
     Active Substance: PENICILLIN G BENZATHINE
     Dosage: 2 UNK
     Dates: start: 20110615, end: 20110615
  19. PENICILLIN G BENZATHINE [Concomitant]
     Active Substance: PENICILLIN G BENZATHINE
     Dosage: 2 UNK
     Dates: start: 20110627, end: 20110627
  20. CEFUROXIME [Concomitant]
     Active Substance: CEFUROXIME
     Indication: Product used for unknown indication
     Dosage: 500 MILLIGRAM
     Dates: start: 20111220, end: 20111224
  21. CHLORHEXIDINE [Concomitant]
     Active Substance: CHLORHEXIDINE
     Indication: Product used for unknown indication
     Dosage: 200 UNK
     Dates: start: 20110604, end: 20110604
  22. CHLORHEXIDINE [Concomitant]
     Active Substance: CHLORHEXIDINE
     Dosage: 200 UNK
     Dates: start: 20120403, end: 20120403
  23. CHLORHEXIDINE [Concomitant]
     Active Substance: CHLORHEXIDINE
     Dosage: 300 UNK
     Dates: start: 20120507, end: 20120508
  24. CHLORPHENIRAMINE MALEATE [Concomitant]
     Active Substance: CHLORPHENIRAMINE MALEATE
     Indication: Product used for unknown indication
     Dosage: 2 MILLIGRAM
     Dates: start: 20111220, end: 20111224
  25. CHLORPHENIRAMINE MALEATE [Concomitant]
     Active Substance: CHLORPHENIRAMINE MALEATE
     Dosage: 2 MILLIGRAM
     Dates: start: 20111226, end: 20111230
  26. CHLORPHENIRAMINE MALEATE [Concomitant]
     Active Substance: CHLORPHENIRAMINE MALEATE
     Dosage: 2 MILLIGRAM
     Dates: start: 20120130, end: 20120201
  27. CHLORPHENIRAMINE MALEATE [Concomitant]
     Active Substance: CHLORPHENIRAMINE MALEATE
     Dosage: 2 MILLIGRAM
     Dates: start: 20120213, end: 20120217
  28. CHLORPHENIRAMINE MALEATE [Concomitant]
     Active Substance: CHLORPHENIRAMINE MALEATE
     Dosage: 2 MILLIGRAM
     Dates: start: 20120305, end: 20120310
  29. CHLORPHENIRAMINE MALEATE [Concomitant]
     Active Substance: CHLORPHENIRAMINE MALEATE
     Dosage: 2 MILLIGRAM
     Dates: start: 20120417, end: 20120421
  30. CHLORPHENIRAMINE MALEATE [Concomitant]
     Active Substance: CHLORPHENIRAMINE MALEATE
     Dosage: 4 MILLIGRAM
     Dates: start: 20110801, end: 20110801
  31. CHLORPHENIRAMINE MALEATE [Concomitant]
     Active Substance: CHLORPHENIRAMINE MALEATE
     Dosage: 4 MILLIGRAM
     Dates: start: 20120402, end: 20120402
  32. CHLORPHENIRAMINE MALEATE [Concomitant]
     Active Substance: CHLORPHENIRAMINE MALEATE
     Dosage: 6 MILLIGRAM
     Dates: start: 20120507, end: 20120508
  33. CHLORPHENIRAMINE MALEATE [Concomitant]
     Active Substance: CHLORPHENIRAMINE MALEATE
     Dosage: 8 MILLIGRAM
     Dates: start: 20120508, end: 20120509
  34. CIPROFLOXACIN [Concomitant]
     Active Substance: CIPROFLOXACIN
     Indication: Product used for unknown indication
     Dosage: 1000 MILLIGRAM
     Dates: start: 20110602, end: 20110603
  35. CIPROFLOXACIN [Concomitant]
     Active Substance: CIPROFLOXACIN
     Dosage: 1000 MILLIGRAM
     Dates: start: 20110605, end: 20110610
  36. CIPROFLOXACIN [Concomitant]
     Active Substance: CIPROFLOXACIN
     Dosage: 1000 MILLIGRAM
     Dates: start: 20110711, end: 20110807
  37. CIPROFLOXACIN [Concomitant]
     Active Substance: CIPROFLOXACIN
     Dosage: 1000 MILLIGRAM
     Dates: start: 20110808, end: 20110814
  38. CIPROFLOXACIN [Concomitant]
     Active Substance: CIPROFLOXACIN
     Dosage: 1000 MILLIGRAM
     Dates: start: 20110816, end: 20110904
  39. CIPROFLOXACIN [Concomitant]
     Active Substance: CIPROFLOXACIN
     Dosage: 1000 MILLIGRAM
     Dates: start: 20110905, end: 20111002
  40. CIPROFLOXACIN [Concomitant]
     Active Substance: CIPROFLOXACIN
     Dosage: 1000 MILLIGRAM
     Dates: start: 20111004, end: 20111017
  41. CIPROFLOXACIN [Concomitant]
     Active Substance: CIPROFLOXACIN
     Dosage: 1000 MILLIGRAM
     Dates: start: 20111019, end: 20111021
  42. CIPROFLOXACIN [Concomitant]
     Active Substance: CIPROFLOXACIN
     Dosage: 1000 MILLIGRAM
     Dates: start: 20111128, end: 20111211
  43. CIPROFLOXACIN [Concomitant]
     Active Substance: CIPROFLOXACIN
     Dosage: 1000 MILLIGRAM
     Dates: start: 20120507, end: 20120508
  44. CIPROFLOXACIN [Concomitant]
     Active Substance: CIPROFLOXACIN
     Dosage: 1500 MILLIGRAM
     Dates: start: 20110604, end: 20110604
  45. DEXTROSE [Concomitant]
     Active Substance: DEXTROSE
     Indication: Product used for unknown indication
     Dosage: 100 UNK
     Dates: start: 20111019, end: 20111019
  46. DEXTROSE [Concomitant]
     Active Substance: DEXTROSE
     Dosage: 100 UNK
     Dates: start: 20120403, end: 20120403
  47. DEXTROSE [Concomitant]
     Active Substance: DEXTROSE
     Dosage: 100 UNK
     Dates: start: 20120508, end: 20120509
  48. DEXTROSE [Concomitant]
     Active Substance: DEXTROSE
     Dosage: 500 UNK
     Dates: start: 20110603, end: 20110607
  49. GRANISETRON [Concomitant]
     Active Substance: GRANISETRON
     Indication: Product used for unknown indication
     Dosage: 3 MILLIGRAM
     Dates: start: 20110711, end: 20110711
  50. GRANISETRON [Concomitant]
     Active Substance: GRANISETRON
     Dosage: 3 MILLIGRAM
     Dates: start: 20110808, end: 20110808
  51. GRANISETRON [Concomitant]
     Active Substance: GRANISETRON
     Dosage: 3 MILLIGRAM
     Dates: start: 20110905, end: 20110905
  52. GRANISETRON [Concomitant]
     Active Substance: GRANISETRON
     Dosage: 3 MILLIGRAM
     Dates: start: 20111107, end: 20111107
  53. GRANISETRON [Concomitant]
     Active Substance: GRANISETRON
     Dosage: 3 MILLIGRAM
     Dates: start: 20120102, end: 20120102
  54. GRANISETRON [Concomitant]
     Active Substance: GRANISETRON
     Dosage: 3 MILLIGRAM
     Dates: start: 20120213, end: 20120213
  55. GRANISETRON [Concomitant]
     Active Substance: GRANISETRON
     Dosage: 3 MILLIGRAM
     Dates: start: 20120417, end: 20120417
  56. ITRACONAZOLE [Concomitant]
     Active Substance: ITRACONAZOLE
     Indication: Product used for unknown indication
     Dosage: 40 UNK
     Dates: start: 20110602, end: 20110707
  57. ITRACONAZOLE [Concomitant]
     Active Substance: ITRACONAZOLE
     Dosage: 40 UNK
     Dates: start: 20110711, end: 20110804
  58. ITRACONAZOLE [Concomitant]
     Active Substance: ITRACONAZOLE
     Dosage: 40 UNK
     Dates: start: 20110808, end: 20110902
  59. ITRACONAZOLE [Concomitant]
     Active Substance: ITRACONAZOLE
     Dosage: 40 UNK
     Dates: start: 20110905, end: 20111028
  60. LIDOCAINE [Concomitant]
     Active Substance: LIDOCAINE
     Indication: Product used for unknown indication
     Dosage: 300 UNK
     Dates: start: 20120507, end: 20120508
  61. MAGNESIUM OXIDE [Concomitant]
     Active Substance: MAGNESIUM OXIDE
     Indication: Product used for unknown indication
     Dosage: 750 MILLIGRAM
     Dates: start: 20120227, end: 20120318
  62. ACETAMINOPHEN [Concomitant]
     Active Substance: ACETAMINOPHEN
     Indication: Product used for unknown indication
     Dosage: 1300 MILLIGRAM
     Dates: start: 20120130, end: 20120201
  63. ACETAMINOPHEN [Concomitant]
     Active Substance: ACETAMINOPHEN
     Dosage: 1950 MILLIGRAM
     Dates: start: 20111220, end: 20111224
  64. ACETAMINOPHEN [Concomitant]
     Active Substance: ACETAMINOPHEN
     Dosage: 1950 MILLIGRAM
     Dates: start: 20120507, end: 20120508
  65. MEPERIDINE [Concomitant]
     Active Substance: MEPERIDINE
     Indication: Product used for unknown indication
     Dosage: 50 MILLIGRAM
     Dates: start: 20111019, end: 20111019
  66. MEPERIDINE [Concomitant]
     Active Substance: MEPERIDINE
     Dosage: 50 MILLIGRAM
     Dates: start: 20120403, end: 20120403
  67. SILYMARIN 100 [Concomitant]
     Indication: Product used for unknown indication
     Dosage: 3 UNK
     Dates: start: 20110608, end: 20110612
  68. URSODIOL [Concomitant]
     Active Substance: URSODIOL
     Indication: Product used for unknown indication
     Dosage: 300 MILLIGRAM
     Dates: start: 20110606, end: 20110612

REACTIONS (25)
  - Pancytopenia [Recovered/Resolved]
  - Pancytopenia [Recovered/Resolved]
  - Pancytopenia [Recovered/Resolved]
  - Dysphonia [Recovered/Resolved]
  - Rhinorrhoea [Recovered/Resolved]
  - Feeling hot [Recovered/Resolved]
  - Palpitations [Recovered/Resolved]
  - Upper respiratory tract infection [Recovered/Resolved]
  - Dizziness [Recovered/Resolved]
  - Dyspnoea [Recovered/Resolved]
  - Asthenia [Recovered/Resolved]
  - Myalgia [Recovered/Resolved]
  - Rhinorrhoea [Recovered/Resolved]
  - Dyspnoea [Recovered/Resolved]
  - Dyspnoea [Recovered/Resolved]
  - Dyspnoea [Recovered/Resolved]
  - Asthenia [Recovered/Resolved]
  - Asthenia [Recovered/Resolved]
  - Palpitations [Recovered/Resolved]
  - Palpitations [Recovered/Resolved]
  - Fatigue [Recovered/Resolved]
  - Dizziness [Recovered/Resolved]
  - Dyspnoea [Recovered/Resolved]
  - Palpitations [Recovered/Resolved]
  - Fatigue [Recovered/Resolved]

NARRATIVE: CASE EVENT DATE: 20110627
